FAERS Safety Report 9555705 (Version 1)
Quarter: 2013Q3

REPORT INFORMATION
  Report Type: Spontaneous
  Country: US (occurrence: None)
  Receive Date: 20130925
  Receipt Date: 20130925
  Transmission Date: 20140515
  Serious: Yes (Life-Threatening, Other)
  Sender: FDA-Public Use
  Company Number: None

PATIENT
  Age: 32 Year
  Sex: Female
  Weight: 53.52 kg

DRUGS (2)
  1. TRAMADOL [Suspect]
     Indication: SPINAL FRACTURE
     Dosage: TWO TABLETS
     Route: 048
     Dates: start: 20121104, end: 20130610
  2. TRAMADOL [Suspect]
     Indication: PAIN
     Dosage: TWO TABLETS
     Route: 048
     Dates: start: 20121104, end: 20130610

REACTIONS (10)
  - Hypertensive crisis [None]
  - Petit mal epilepsy [None]
  - Hyperreflexia [None]
  - Mental status changes [None]
  - Serotonin syndrome [None]
  - Drug dependence [None]
  - Withdrawal syndrome [None]
  - Agitation [None]
  - Cold sweat [None]
  - Insomnia [None]
